FAERS Safety Report 8588363-7 (Version None)
Quarter: 2012Q3

REPORT INFORMATION
  Report Type: 
  Country: None (occurrence: None)
  Receive Date: 20120813
  Receipt Date: 20120801
  Transmission Date: 20120928
  Serious: Yes (Hospitalization)
  Sender: FDA-Public Use
  Company Number: US-BAYER-2012-075744

PATIENT
  Age: 42 Year
  Sex: Female

DRUGS (22)
  1. LEVOTHYROXINE SODIUM [Concomitant]
     Dosage: 112 ?G, UNK
     Route: 048
     Dates: start: 20100421
  2. OMEPRAZOLE [Concomitant]
     Dosage: 20 MG, UNK
     Route: 048
     Dates: start: 20100614
  3. LAMOTRIGINE [Concomitant]
     Dosage: 25 MG, UNK
     Route: 048
     Dates: start: 20100614
  4. OXYCODONE HCL AND ACETAMINOPHEN [Concomitant]
     Dosage: 5-325 MG
     Route: 048
     Dates: start: 20100722
  5. IBUPROFEN [Concomitant]
     Dosage: 600 MG, UNK
     Route: 048
     Dates: start: 20100722
  6. RISPERIDONE [Concomitant]
     Dosage: 0.25 MG, BID
     Dates: start: 20100811
  7. SERTRALINE HYDROCHLORIDE [Concomitant]
     Dosage: UNK
     Dates: start: 20100614, end: 20100811
  8. AZITHROMYCIN [Concomitant]
     Dosage: 250 MG, UNK
     Route: 048
     Dates: start: 20100708
  9. PRILOSEC [Concomitant]
  10. LEVOTHYROXINE SODIUM [Concomitant]
     Dosage: DAILY150 ?G, UNK
     Route: 048
     Dates: start: 20100602
  11. ALPRAZOLAM [Concomitant]
     Dosage: UNK
     Dates: start: 20100614, end: 20100811
  12. CEPHALEXIN [Concomitant]
     Dosage: 500 MG, UNK
     Route: 048
     Dates: start: 20100722
  13. ZOLOFT [Concomitant]
     Dosage: 100 MG, UNK
  14. OMEPRAZOLE [Concomitant]
     Dosage: UNK
     Dates: start: 20100614
  15. LAMOTRIGINE [Concomitant]
     Dosage: UNK
     Dates: start: 20100614
  16. VALACYCLOVIR HYDROCHLORIDE [Concomitant]
     Dosage: 1 GRAM TABLET
     Route: 048
     Dates: start: 20100603
  17. YAZ [Suspect]
     Indication: MENSTRUAL DISORDER
     Dosage: UNK
     Dates: start: 20100620, end: 20100812
  18. SERTRALINE HYDROCHLORIDE [Concomitant]
     Dosage: 100 MG, DAILY
     Route: 048
     Dates: start: 20100614, end: 20100811
  19. ALPRAZOLAM [Concomitant]
     Dosage: 0.5 MG AS NEEDED OR 2 TABLETS AS NEEDED AT NIGHT
     Route: 048
     Dates: start: 20100614, end: 20100811
  20. LAMICTAL [Concomitant]
  21. LEVOTHYROXINE SODIUM [Concomitant]
     Dosage: 150 ?G, UNK
     Dates: start: 20100811
  22. XANAX [Concomitant]
     Dosage: 1 MG, UNK DAILY

REACTIONS (5)
  - INJURY [None]
  - PAIN [None]
  - PULMONARY EMBOLISM [None]
  - GALLBLADDER NON-FUNCTIONING [None]
  - DEEP VEIN THROMBOSIS [None]
